FAERS Safety Report 12134372 (Version 1)
Quarter: 2016Q1

REPORT INFORMATION
  Report Type: Spontaneous
  Country: FR (occurrence: FR)
  Receive Date: 20160301
  Receipt Date: 20160301
  Transmission Date: 20160526
  Serious: Yes (Hospitalization)
  Sender: FDA-Public Use
  Company Number: FR-SA-2016SA037911

PATIENT
  Age: 46 Year
  Sex: Female

DRUGS (3)
  1. TRANXENE T-TAB [Suspect]
     Active Substance: CLORAZEPATE DIPOTASSIUM
     Dosage: 16 DF, 1 IN 1 SINGLE DOSE
     Route: 048
     Dates: start: 20151008, end: 20151008
  2. STILNOX [Suspect]
     Active Substance: ZOLPIDEM TARTRATE
     Dosage: 16 DF,1 IN 1 SINGLE DOSE
     Route: 048
     Dates: start: 20151008, end: 20151008
  3. SERESTA [Suspect]
     Active Substance: OXAZEPAM
     Dosage: 16 DF,1 IN 1 SINGLE DOSE
     Route: 048
     Dates: start: 20151008, end: 20151008

REACTIONS (3)
  - Miosis [Recovered/Resolved]
  - Somnolence [Recovered/Resolved]
  - Hypothermia [Recovered/Resolved]

NARRATIVE: CASE EVENT DATE: 20151008
